FAERS Safety Report 4654868-4 (Version None)
Quarter: 2005Q2

REPORT INFORMATION
  Report Type: 
  Country: None (occurrence: None)
  Receive Date: 20050506
  Receipt Date: 20050414
  Transmission Date: 20051028
  Serious: Yes (Hospitalization)
  Sender: FDA-Public Use
  Company Number: BE-MERCK-0504BEL00075

PATIENT
  Age: 72 Year
  Sex: Male
  Weight: 94 kg

DRUGS (8)
  1. ZOCOR [Suspect]
     Indication: HYPERCHOLESTEROLAEMIA
     Route: 048
     Dates: start: 20030202
  2. COZAAR [Concomitant]
     Indication: HYPERTENSION
     Route: 048
     Dates: start: 20020301
  3. ASPIRIN [Concomitant]
     Indication: CARDIOVASCULAR DISORDER
     Route: 048
     Dates: start: 19971006
  4. MOLSIDOMINE [Concomitant]
     Indication: CORONARY ARTERY ATHEROSCLEROSIS
     Route: 048
     Dates: start: 20020116
  5. PIRACETAM [Concomitant]
     Indication: CEREBROVASCULAR ACCIDENT PROPHYLAXIS
     Route: 048
     Dates: start: 20020116
  6. GLIQUIDONE [Concomitant]
     Indication: DIABETES MELLITUS
     Route: 048
     Dates: start: 20000313
  7. ALLOPURINOL [Concomitant]
     Indication: GOUT
     Route: 048
     Dates: start: 20010116
  8. WARFARIN SODIUM [Concomitant]
     Indication: ANTICOAGULANT THERAPY
     Route: 048
     Dates: start: 20050207

REACTIONS (1)
  - CEREBROVASCULAR ACCIDENT [None]
